FAERS Safety Report 11858380 (Version 1)
Quarter: 2015Q4

REPORT INFORMATION
  Report Type: Spontaneous
  Country: US (occurrence: US)
  Receive Date: 20151222
  Receipt Date: 20151222
  Transmission Date: 20160305
  Serious: Yes (Other)
  Sender: FDA-Public Use
  Company Number: US-ELI_LILLY_AND_COMPANY-US201512003537

PATIENT
  Age: 47 Year
  Sex: Male

DRUGS (2)
  1. CIALIS [Suspect]
     Active Substance: TADALAFIL
     Indication: ERECTILE DYSFUNCTION
     Dosage: 5 MG, QD
     Route: 065
     Dates: start: 20151020
  2. CIALIS [Suspect]
     Active Substance: TADALAFIL
     Dosage: 20 MG, PRN
     Route: 065

REACTIONS (10)
  - Optic ischaemic neuropathy [Unknown]
  - Visual acuity reduced [Unknown]
  - Wrong technique in product usage process [Unknown]
  - Dry mouth [Unknown]
  - Lacrimation increased [Unknown]
  - Vision blurred [Unknown]
  - Insomnia [Unknown]
  - Migraine [Unknown]
  - Vitreous floaters [Unknown]
  - Eye pain [Unknown]

NARRATIVE: CASE EVENT DATE: 20151027
